FAERS Safety Report 5269841-5 (Version None)
Quarter: 2007Q1

REPORT INFORMATION
  Report Type: 
  Country: None (occurrence: None)
  Receive Date: 20070320
  Receipt Date: 20070313
  Transmission Date: 20070707
  Serious: Yes (Hospitalization)
  Sender: FDA-Public Use
  Company Number: AR-GLAXOSMITHKLINE-A0642514A

PATIENT
  Sex: Male
  Weight: 70 kg

DRUGS (3)
  1. ZIAGENAVIR [Suspect]
     Indication: HIV INFECTION
     Dosage: 600MG PER DAY
     Route: 048
     Dates: start: 20060713, end: 20060715
  2. LAMIVUDINE [Concomitant]
  3. EFAVIRENZ [Concomitant]

REACTIONS (5)
  - HYPOTENSION [None]
  - OLIGURIA [None]
  - SKIN EXFOLIATION [None]
  - STEVENS-JOHNSON SYNDROME [None]
  - TOXIC EPIDERMAL NECROLYSIS [None]
